FAERS Safety Report 5871726-8 (Version None)
Quarter: 2008Q3

REPORT INFORMATION
  Report Type: 
  Country: None (occurrence: None)
  Receive Date: 20080905
  Receipt Date: 20080901
  Transmission Date: 20090109
  Serious: Yes (Death, Life-Threatening, Hospitalization)
  Sender: FDA-Public Use
  Company Number: ES-CELGENEUS-144-21880-08080479

PATIENT
  Sex: Male
  Weight: 65 kg

DRUGS (8)
  1. REVLIMID [Suspect]
     Indication: MYELOFIBROSIS
     Route: 048
     Dates: start: 20071130
  2. REVLIMID [Suspect]
     Route: 048
     Dates: start: 20080101, end: 20080108
  3. RECOMBINANT EPO [Concomitant]
     Indication: PROPHYLAXIS
     Route: 065
     Dates: start: 20070901
  4. LOW MOLECULAR WEIGHT HEPARIN [Concomitant]
     Indication: THROMBOSIS PROPHYLAXIS
     Route: 065
  5. IDALPREM [Concomitant]
     Indication: ANXIETY
  6. CIPRALEX [Concomitant]
     Indication: ANXIETY
     Route: 065
  7. STILNOX [Concomitant]
     Indication: INSOMNIA
     Route: 065
  8. SINTROM [Concomitant]
     Indication: THROMBOSIS PROPHYLAXIS
     Route: 065

REACTIONS (9)
  - BRADYCARDIA [None]
  - BRONCHOPNEUMONIA [None]
  - GASTROINTESTINAL NECROSIS [None]
  - ILEUS PARALYTIC [None]
  - MESENTERIC VEIN THROMBOSIS [None]
  - MULTI-ORGAN FAILURE [None]
  - PORTAL VEIN THROMBOSIS [None]
  - RESPIRATORY ARREST [None]
  - SEPTIC SHOCK [None]
